FAERS Safety Report 8857459 (Version 1)
Quarter: 2012Q4

REPORT INFORMATION
  Report Type: 
  Country: US (occurrence: US)
  Receive Date: 20121024
  Receipt Date: 20121024
  Transmission Date: 20130627
  Serious: Yes (Other)
  Sender: FDA-Public Use
  Company Number: US-BRISTOL-MYERS SQUIBB COMPANY-17036039

PATIENT
  Age: 69 Year
  Sex: Male
  Weight: 107 kg

DRUGS (4)
  1. COUMADIN [Suspect]
     Indication: ATRIAL FIBRILLATION
     Dosage: other doses:7.5mg 4times/week (Friday, Sunday, Tuesday and Wednesday) and 6.25 mg rest of the week
  2. METFORMIN HCL [Suspect]
     Indication: GLUCOSE TOLERANCE IMPAIRED
  3. ICAPS [Concomitant]
  4. LUTEIN [Concomitant]

REACTIONS (4)
  - Blue toe syndrome [Recovered/Resolved]
  - Glucose tolerance impaired [Unknown]
  - International normalised ratio fluctuation [Unknown]
  - Blood glucose fluctuation [Unknown]
